FAERS Safety Report 24350068 (Version 2)
Quarter: 2025Q2

REPORT INFORMATION
  Report Type: Spontaneous
  Country: AU (occurrence: AU)
  Receive Date: 20240923
  Receipt Date: 20250623
  Transmission Date: 20250716
  Serious: Yes (Other)
  Sender: SAMSUNG BIOEPIS
  Company Number: AU-SAMSUNG BIOEPIS-SB-2024-28036

PATIENT
  Sex: Male
  Weight: 64 kg

DRUGS (2)
  1. RENFLEXIS [Suspect]
     Active Substance: INFLIXIMAB-ABDA
     Indication: Crohn^s disease
     Dosage: 700 MG DOSE; 100MG VIAL;
  2. RENFLEXIS [Suspect]
     Active Substance: INFLIXIMAB-ABDA

REACTIONS (4)
  - Crohn^s disease [Unknown]
  - Faecal calprotectin increased [Unknown]
  - Weight decreased [Unknown]
  - Off label use [Unknown]
